FAERS Safety Report 8858260 (Version 1)
Quarter: 2012Q4

REPORT INFORMATION
  Report Type: 
  Country: US (occurrence: US)
  Receive Date: 20121024
  Receipt Date: 20121024
  Transmission Date: 20130627
  Serious: No
  Sender: FDA-Public Use
  Company Number: US-AMGEN-USASP2011062525

PATIENT
  Age: 56 Year
  Sex: Female
  Weight: 68.03 kg

DRUGS (9)
  1. ENBREL [Suspect]
     Indication: RHEUMATOID ARTHRITIS
     Dosage: 50 mg, qwk
     Dates: start: 20111108, end: 20111116
  2. ENBREL [Suspect]
     Dosage: 25 mg, 2 times/wk
     Route: 058
  3. ARAVA [Concomitant]
     Dosage: 1 mg, qd
     Dates: start: 201110
  4. TYLENOL W/CODEINE NO. 3 [Concomitant]
  5. SYNTHROID [Concomitant]
     Dosage: 50 mug, UNK
  6. ALLEGRA [Concomitant]
     Dosage: 30 mg, UNK
  7. LEFLUNOMIDE [Concomitant]
     Dosage: 10 mg, UNK
  8. ATACAND [Concomitant]
     Dosage: 16 mg, UNK
  9. ADVIL [Concomitant]
     Dosage: 200 mg, UNK

REACTIONS (7)
  - Rubber sensitivity [Not Recovered/Not Resolved]
  - Rheumatoid arthritis [Not Recovered/Not Resolved]
  - Pain in extremity [Unknown]
  - Asthenia [Unknown]
  - Rash macular [Not Recovered/Not Resolved]
  - Rash pruritic [Not Recovered/Not Resolved]
  - Rash generalised [Unknown]
